FAERS Safety Report 20226258 (Version 2)
Quarter: 2022Q1

REPORT INFORMATION
  Report Type: Spontaneous
  Country: US (occurrence: US)
  Receive Date: 20211224
  Receipt Date: 20220113
  Transmission Date: 20220424
  Serious: Yes (Other)
  Sender: FDA-Public Use
  Company Number: US-IPSEN Group, Research and Development-2021-32590

PATIENT
  Age: 14 Year
  Sex: Female

DRUGS (1)
  1. INCRELEX [Suspect]
     Active Substance: MECASERMIN
     Indication: Severe primary insulin like growth factor-1 deficiency
     Dosage: DOSE NOT REPORTED
     Route: 065

REACTIONS (2)
  - Epiphyses premature fusion [Unknown]
  - Anxiety [Unknown]
